FAERS Safety Report 23865913 (Version 1)
Quarter: 2024Q2

REPORT INFORMATION
  Report Type: Spontaneous
  Country: US (occurrence: None)
  Receive Date: 20240517
  Receipt Date: 20240517
  Transmission Date: 20240716
  Serious: Yes (Hospitalization, Other)
  Sender: FDA-Public Use
  Company Number: US-Axsome Therapeutics, Inc.-AXS202405-000573

PATIENT
  Sex: Female

DRUGS (16)
  1. SUNOSI [Suspect]
     Active Substance: SOLRIAMFETOL
     Indication: Product used for unknown indication
     Dosage: UNK
     Route: 048
  2. CALCIUM OXYBATE\MAGNESIUM OXYBATE\POTASSIUM OXYBATE\SODIUM OXYBATE [Suspect]
     Active Substance: CALCIUM OXYBATE\MAGNESIUM OXYBATE\POTASSIUM OXYBATE\SODIUM OXYBATE
     Indication: Product used for unknown indication
     Dosage: UNK
     Route: 065
  3. DULOXETINE [Suspect]
     Active Substance: DULOXETINE
     Indication: Rapid eye movements sleep abnormal
     Dosage: UNK
     Route: 065
  4. WAKIX [Suspect]
     Active Substance: PITOLISANT HYDROCHLORIDE
     Indication: Narcolepsy
     Route: 048
  5. WAKIX [Suspect]
     Active Substance: PITOLISANT HYDROCHLORIDE
     Indication: Cataplexy
     Route: 048
  6. WAKIX [Suspect]
     Active Substance: PITOLISANT HYDROCHLORIDE
     Route: 048
  7. WAKIX [Suspect]
     Active Substance: PITOLISANT HYDROCHLORIDE
     Route: 048
  8. AMLODIPINE BESYLATE [Concomitant]
     Active Substance: AMLODIPINE BESYLATE
     Indication: Product used for unknown indication
     Route: 065
  9. ASPIRIN [Concomitant]
     Active Substance: ASPIRIN
     Indication: Product used for unknown indication
     Route: 048
  10. BENZONATATE [Concomitant]
     Active Substance: BENZONATATE
     Indication: Product used for unknown indication
     Route: 065
  11. DIPHENHYDRAMINE [Concomitant]
     Active Substance: DIPHENHYDRAMINE
     Indication: Product used for unknown indication
     Dosage: UNK
     Route: 065
  12. ACETAMINOPHEN [Concomitant]
     Active Substance: ACETAMINOPHEN
     Indication: Product used for unknown indication
     Dosage: UNK
     Route: 065
  13. PREDNISONE [Concomitant]
     Active Substance: PREDNISONE
     Indication: Product used for unknown indication
     Route: 065
  14. ALBUTEROL SULFATE [Concomitant]
     Active Substance: ALBUTEROL SULFATE
     Indication: Product used for unknown indication
     Dosage: UNK
     Route: 065
  15. THIAMINE HYDROCHLORIDE, RETINOL [Concomitant]
     Indication: Product used for unknown indication
     Dosage: UNK
     Route: 065
  16. XYREM [Concomitant]
     Active Substance: SODIUM OXYBATE
     Indication: Product used for unknown indication
     Dosage: UNK
     Route: 065

REACTIONS (22)
  - Mania [Recovered/Resolved]
  - Electrocardiogram QT prolonged [Unknown]
  - Brain injury [Unknown]
  - Cataplexy [Unknown]
  - Bipolar disorder [Unknown]
  - Ventricular extrasystoles [Unknown]
  - Delusional disorder, unspecified type [Not Recovered/Not Resolved]
  - Extrasystoles [Unknown]
  - Confusional state [Unknown]
  - Viral infection [Unknown]
  - Chills [Unknown]
  - Abnormal behaviour [Unknown]
  - Nasopharyngitis [Unknown]
  - Pyrexia [Unknown]
  - Depression [Unknown]
  - Chest discomfort [Unknown]
  - Cough [Unknown]
  - Dyspnoea [Unknown]
  - Unevaluable event [Unknown]
  - Drug interaction [Unknown]
  - Intentional product misuse [Recovered/Resolved]
  - Product dose omission issue [Recovered/Resolved]
